FAERS Safety Report 5695103-8 (Version None)
Quarter: 2008Q2

REPORT INFORMATION
  Report Type: 
  Country: None (occurrence: None)
  Receive Date: 20080404
  Receipt Date: 20080324
  Transmission Date: 20081010
  Serious: Yes (Death, Life-Threatening, Other)
  Sender: FDA-Public Use
  Company Number: JP-PFIZER INC-2008018321

PATIENT
  Sex: Male
  Weight: 50 kg

DRUGS (13)
  1. ZYVOX [Suspect]
     Indication: STAPHYLOCOCCAL INFECTION
     Route: 042
     Dates: start: 20080220, end: 20080225
  2. DALACIN S [Suspect]
     Indication: INFECTION
     Route: 042
     Dates: start: 20080213, end: 20080217
  3. AMBISOME [Concomitant]
     Route: 042
     Dates: start: 20080217, end: 20080303
  4. OMEPRAL [Concomitant]
     Route: 042
     Dates: start: 20080130, end: 20080305
  5. STRONG NEO-MINOPHAGEN C [Concomitant]
     Route: 042
  6. VANCOMYCIN HYDROCHLORIDE [Concomitant]
     Route: 042
     Dates: start: 20080217, end: 20080219
  7. HICALIQ [Concomitant]
     Route: 042
  8. AMINOLEBAN [Concomitant]
     Route: 042
  9. ELEMENMIC [Concomitant]
     Route: 042
  10. POTASSIUM PHOSPHATE DIBASIC [Concomitant]
     Route: 042
  11. VITAJECT [Concomitant]
     Route: 042
  12. CIPROFLOXACIN [Concomitant]
     Route: 042
     Dates: start: 20080206, end: 20080212
  13. ALL OTHER THERAPEUTIC PRODUCTS [Concomitant]
     Route: 042
     Dates: start: 20080208, end: 20080213

REACTIONS (5)
  - DRUG INEFFECTIVE [None]
  - GASTRIC PERFORATION [None]
  - MULTI-ORGAN FAILURE [None]
  - PLATELET COUNT DECREASED [None]
  - WHITE BLOOD CELL COUNT DECREASED [None]
